FAERS Safety Report 4809171-6 (Version None)
Quarter: 2005Q4

REPORT INFORMATION
  Report Type: 
  Country: None (occurrence: None)
  Receive Date: 20051021
  Receipt Date: 20020723
  Transmission Date: 20060501
  Serious: No
  Sender: FDA-Public Use
  Company Number: US_020886518

PATIENT
  Age: 15 Year
  Sex: Female

DRUGS (3)
  1. ZYPREXA [Suspect]
     Indication: SCHIZOPHRENIA
     Dosage: 10 MG/DAY
  2. RISPERDAL [Concomitant]
  3. ARTANE 9TRIHEXYPHENIDYL HYDROCHLORIDE) [Concomitant]

REACTIONS (2)
  - BLOOD CREATINE PHOSPHOKINASE INCREASED [None]
  - PLATELET COUNT DECREASED [None]
